FAERS Safety Report 15560210 (Version 1)
Quarter: 2018Q4

REPORT INFORMATION
  Report Type: Report from Study
  Country: US (occurrence: US)
  Receive Date: 20181029
  Receipt Date: 20181029
  Transmission Date: 20190205
  Serious: Yes (Hospitalization)
  Sender: FDA-Public Use
  Company Number: US-BIOGEN-2018BI00650859

PATIENT
  Age: 64 Year
  Sex: Female

DRUGS (1)
  1. TECFIDERA [Suspect]
     Active Substance: DIMETHYL FUMARATE
     Indication: MULTIPLE SCLEROSIS
     Dosage: MAINTAINANCE DOSE
     Route: 048
     Dates: start: 20160816

REACTIONS (4)
  - Speech disorder [Unknown]
  - Dysphagia [Unknown]
  - Cerebrovascular accident [Unknown]
  - Hypokinesia [Unknown]

NARRATIVE: CASE EVENT DATE: 20181020
